FAERS Safety Report 18903753 (Version 1)
Quarter: 2021Q1

REPORT INFORMATION
  Report Type: Spontaneous
  Country: US (occurrence: US)
  Receive Date: 20210217
  Receipt Date: 20210217
  Transmission Date: 20210420
  Serious: Yes (Hospitalization)
  Sender: FDA-Public Use
  Company Number: None

PATIENT
  Age: 73 Year
  Sex: Female
  Weight: 85.2 kg

DRUGS (2)
  1. ALIMTA [Suspect]
     Active Substance: PEMETREXED DISODIUM
     Dates: end: 20210209
  2. CISPLATIN 78MG [Suspect]
     Active Substance: CISPLATIN
     Dates: end: 20210119

REACTIONS (5)
  - Localised oedema [None]
  - Thrombosis in device [None]
  - Superior vena cava occlusion [None]
  - Swelling [None]
  - Brain oedema [None]

NARRATIVE: CASE EVENT DATE: 20210125
